FAERS Safety Report 18250556 (Version 1)
Quarter: 2020Q3

REPORT INFORMATION
  Report Type: Report from Study
  Country: US (occurrence: CA)
  Receive Date: 20200909
  Receipt Date: 20200909
  Transmission Date: 20201103
  Serious: Yes (Death)
  Sender: FDA-Public Use
  Company Number: CA-EXELIXIS-CABO-20031432

PATIENT
  Age: 66 Year
  Sex: Male

DRUGS (30)
  1. VITAMIN D [Concomitant]
     Active Substance: VITAMIN D NOS
  2. PROGRAF [Concomitant]
     Active Substance: TACROLIMUS
  3. ATORVASTATIN [Concomitant]
     Active Substance: ATORVASTATIN
  4. RISEDRONATE [Concomitant]
     Active Substance: RISEDRONATE SODIUM
  5. LEVEMIR [Concomitant]
     Active Substance: INSULIN DETEMIR
  6. FOLIC ACID. [Concomitant]
     Active Substance: FOLIC ACID
  7. HYDROMORPHONE [Concomitant]
     Active Substance: HYDROMORPHONE
  8. UREMOL HC [Concomitant]
  9. FUROSEMIDE. [Concomitant]
     Active Substance: FUROSEMIDE
  10. MINERAL [Concomitant]
  11. VITAMIN B12 [Concomitant]
     Active Substance: CYANOCOBALAMIN
  12. ALPHA LIPOIC ACID [Concomitant]
     Active Substance: .ALPHA.-LIPOIC ACID
  13. VITAMIN B6 [Concomitant]
     Active Substance: PYRIDOXINE HYDROCHLORIDE
  14. MAGNESIUM [Concomitant]
     Active Substance: MAGNESIUM
  15. CABOMETYX [Suspect]
     Active Substance: CABOZANTINIB S-MALATE
     Indication: HEPATOCELLULAR CARCINOMA
     Dosage: 60 MG, QD
     Route: 048
     Dates: start: 20200312, end: 20200807
  16. PANTOPRAZOLE [Concomitant]
     Active Substance: PANTOPRAZOLE
  17. MULTIVITAMIN [Concomitant]
     Active Substance: VITAMINS
  18. METOPROLOL. [Concomitant]
     Active Substance: METOPROLOL
  19. ASA [Concomitant]
     Active Substance: ASPIRIN
  20. TAZORAC [Concomitant]
     Active Substance: TAZAROTENE
  21. SORAFENIB [Concomitant]
     Active Substance: SORAFENIB
  22. CALCIUM [Concomitant]
     Active Substance: CALCIUM
  23. ZINC. [Concomitant]
     Active Substance: ZINC
  24. PREDNISONE. [Concomitant]
     Active Substance: PREDNISONE
  25. PREGABALIN. [Concomitant]
     Active Substance: PREGABALIN
  26. AMLODIPINE [Concomitant]
     Active Substance: AMLODIPINE BESYLATE
  27. HUMALOG [Concomitant]
     Active Substance: INSULIN LISPRO
  28. VITAMIN E [Concomitant]
     Active Substance: .ALPHA.-TOCOPHEROL
  29. IRBESARTAN. [Concomitant]
     Active Substance: IRBESARTAN
  30. LOPERAMIDE [Concomitant]
     Active Substance: LOPERAMIDE

REACTIONS (2)
  - Death [Fatal]
  - Malignant neoplasm progression [Unknown]

NARRATIVE: CASE EVENT DATE: 20200807
